FAERS Safety Report 7628043-5 (Version None)
Quarter: 2011Q3

REPORT INFORMATION
  Report Type: 
  Country: None (occurrence: None)
  Receive Date: 20110722
  Receipt Date: 20110713
  Transmission Date: 20111222
  Serious: No
  Sender: FDA-Public Use
  Company Number: US-BIOGENIDEC-2011BI026278

PATIENT
  Age: 54 Year
  Sex: Female

DRUGS (1)
  1. TYSABRI [Suspect]
     Indication: MULTIPLE SCLEROSIS
     Route: 042
     Dates: start: 20101104

REACTIONS (7)
  - HYPERSENSITIVITY [None]
  - VISUAL IMPAIRMENT [None]
  - EYE IRRITATION [None]
  - FATIGUE [None]
  - OROPHARYNGEAL PAIN [None]
  - TONGUE DISORDER [None]
  - INFLUENZA LIKE ILLNESS [None]
